FAERS Safety Report 7468209-0 (Version None)
Quarter: 2011Q2

REPORT INFORMATION
  Report Type: 
  Country: None (occurrence: None)
  Receive Date: 20110509
  Receipt Date: 20100422
  Transmission Date: 20111010
  Serious: No
  Sender: FDA-Public Use
  Company Number: US-SANOFI-AVENTIS-2010SA019426

PATIENT
  Age: 67 Year
  Sex: Female

DRUGS (5)
  1. APIDRA [Suspect]
     Indication: INSULIN-REQUIRING TYPE 2 DIABETES MELLITUS
     Dosage: SLIDING SCALE
     Route: 058
     Dates: start: 20100201
  2. APIDRA [Suspect]
     Dosage: DOSE:4 UNIT(S)
     Route: 058
     Dates: start: 20100301
  3. LANTUS [Suspect]
     Dates: start: 20100301
  4. LANTUS [Suspect]
     Indication: INSULIN-REQUIRING TYPE 2 DIABETES MELLITUS
     Dates: start: 20100201
  5. INSULIN DETEMIR [Concomitant]

REACTIONS (11)
  - AGITATION [None]
  - NASAL DISCOMFORT [None]
  - BLOOD GLUCOSE INCREASED [None]
  - FEELING ABNORMAL [None]
  - BLOOD GLUCOSE DECREASED [None]
  - CONFUSIONAL STATE [None]
  - FEELING COLD [None]
  - EYE PRURITUS [None]
  - URTICARIA [None]
  - EYE IRRITATION [None]
  - RASH [None]
